FAERS Safety Report 9539182 (Version 1)
Quarter: 2013Q3

REPORT INFORMATION
  Report Type: Spontaneous
  Country: US (occurrence: None)
  Receive Date: 20130917
  Receipt Date: 20130917
  Transmission Date: 20140515
  Serious: Yes (Other)
  Sender: FDA-Public Use
  Company Number: UCM201309-000057

PATIENT
  Age: 13 Year
  Sex: Male

DRUGS (3)
  1. DIVALPROEX SODIUM [Suspect]
     Route: 048
  2. TEMSIROLIMUS [Suspect]
     Dosage: INITIAL: 60 MG/ME2/WEEK
  3. DIPHEMHYDRAMINE (DIPHEMHYDRAMINE) (DIPHEMHYDRAMINE) [Concomitant]

REACTIONS (7)
  - Stomatitis [None]
  - Oesophagitis [None]
  - Anal inflammation [None]
  - Anaphylactoid reaction [None]
  - Fatigue [None]
  - Drug interaction [None]
  - Toxicity to various agents [None]
